FAERS Safety Report 8555407-8 (Version None)
Quarter: 2012Q3

REPORT INFORMATION
  Report Type: 
  Country: None (occurrence: None)
  Receive Date: 20120731
  Receipt Date: 20110805
  Transmission Date: 20120928
  Serious: No
  Sender: FDA-Public Use
  Company Number: US-ASTRAZENECA-2011SE36486

PATIENT
  Age: 69 Year
  Sex: Female
  Weight: 68 kg

DRUGS (5)
  1. VITAMIN TAB [Concomitant]
  2. AMLODIPINE [Concomitant]
     Indication: BLOOD PRESSURE ABNORMAL
  3. ATENOLOL [Concomitant]
     Indication: HYPERTENSION
  4. SEROQUEL [Suspect]
     Route: 048
  5. GLUCOSAMINE [Concomitant]

REACTIONS (1)
  - BLISTER [None]
